FAERS Safety Report 4477641-9 (Version None)
Quarter: 2004Q3

REPORT INFORMATION
  Report Type: 
  Country: None (occurrence: None)
  Receive Date: 20040923
  Receipt Date: 20040611
  Transmission Date: 20050211
  Serious: No
  Sender: FDA-Public Use
  Company Number: USA040670031

PATIENT
  Age: 68 Year
  Sex: Female
  Weight: 59 kg

DRUGS (11)
  1. FORTEO [Suspect]
     Indication: OSTEOPOROSIS
     Dosage: 20 UG
     Dates: start: 20040301
  2. EVISTA [Suspect]
     Indication: OSTEOPOROSIS
     Dates: end: 20030101
  3. SYNTHROID [Concomitant]
  4. WELCHOL (COLESEVELAN HYDROCHLORIDE) [Concomitant]
  5. PROTONIX [Concomitant]
  6. CALCIUM [Concomitant]
  7. OCUVITE [Concomitant]
  8. VITAMIN CAP [Concomitant]
  9. ASPIRIN [Concomitant]
  10. FISH OIL [Concomitant]
  11. HYALGAN(HYALURONIC ACID) [Concomitant]

REACTIONS (3)
  - BACK PAIN [None]
  - FEELING ABNORMAL [None]
  - PAIN IN EXTREMITY [None]
